FAERS Safety Report 5425149-6 (Version None)
Quarter: 2007Q3

REPORT INFORMATION
  Report Type: 
  Country: None (occurrence: None)
  Receive Date: 20070824
  Receipt Date: 20070814
  Transmission Date: 20080115
  Serious: Yes (Life-Threatening, Hospitalization)
  Sender: FDA-Public Use
  Company Number: US-ROCHE-508367

PATIENT
  Age: 88 Year
  Sex: Male
  Weight: 69.4 kg

DRUGS (12)
  1. BONIVA [Suspect]
     Indication: OSTEOPOROSIS
     Route: 042
     Dates: start: 20070628, end: 20070628
  2. UNSPECIFIED DRUG [Suspect]
     Indication: DRUG USE FOR UNKNOWN INDICATION
     Route: 042
  3. TERAZOSIN HCL [Concomitant]
     Dosage: 1 MG AT BEDTIME.
  4. SIMVASTATIN [Concomitant]
     Dosage: 40 MG AT BEDTIME
  5. CALTRATE PLUS [Concomitant]
     Dosage: 1 TABLET TWICE A DAY.
  6. NIFEDIPINE [Concomitant]
     Dosage: 60 MG HALF TABLET DAILY.
  7. OMEPRAZOLE [Concomitant]
  8. LEVOTHYROXINE SODIUM [Concomitant]
  9. ASPIRIN [Concomitant]
     Dosage: REPORTED AS BABY ASPIRIN.
  10. LYRICA [Concomitant]
     Dosage: 100 MG AT BEDTIME.
  11. TIMOLOL EYE DROPS [Concomitant]
     Dosage: REPORTED AS TIMOLOL OPHTHALMIC DROPS.
  12. MULTIVITAMIN NOS [Concomitant]

REACTIONS (11)
  - CARDIAC MURMUR [None]
  - DEEP VEIN THROMBOSIS [None]
  - FATIGUE [None]
  - HYPOTENSION [None]
  - INFUSION SITE EXTRAVASATION [None]
  - INJECTION SITE CELLULITIS [None]
  - LETHARGY [None]
  - MUCOSAL DRYNESS [None]
  - PEDAL PULSE DECREASED [None]
  - PHLEBITIS [None]
  - VITAMIN B12 DEFICIENCY [None]
